FAERS Safety Report 4845242-6 (Version None)
Quarter: 2005Q4

REPORT INFORMATION
  Report Type: 
  Country: None (occurrence: None)
  Receive Date: 20051125
  Receipt Date: 20051115
  Transmission Date: 20060501
  Serious: Yes (Other)
  Sender: FDA-Public Use
  Company Number: US-2005-023980

PATIENT
  Age: 49 Year
  Sex: Female

DRUGS (25)
  1. CLIMARA [Suspect]
     Indication: MENOPAUSAL SYMPTOMS
  2. PREMARIN [Suspect]
     Indication: MENOPAUSAL SYMPTOMS
     Dosage: TRANSDERMAL
     Route: 062
  3. PROVERA [Suspect]
     Indication: MENOPAUSAL SYMPTOMS
  4. PREMPRO [Suspect]
     Indication: MENOPAUSAL SYMPTOMS
  5. ESTRATAB [Suspect]
     Indication: MENOPAUSAL SYMPTOMS
  6. PROMETRIUM [Suspect]
     Indication: MENOPAUSAL SYMPTOMS
  7. MEDROXYPROGESTERONE ACETATE [Suspect]
     Indication: MENOPAUSAL SYMPTOMS
  8. CYCRIN [Suspect]
     Indication: MENOPAUSAL SYMPTOMS
  9. AYGESTIN [Suspect]
     Indication: MENOPAUSAL SYMPTOMS
  10. PREMPHASE (PREMARIN;CYCRIN 14/14) [Suspect]
     Indication: MENOPAUSAL SYMPTOMS
  11. FEMHRT [Suspect]
     Indication: MENOPAUSAL SYMPTOMS
  12. VAGIFEM [Suspect]
     Indication: MENOPAUSAL SYMPTOMS
  13. ACTIVELLA [Suspect]
     Indication: MENOPAUSAL SYMPTOMS
  14. ESTRADIOL [Suspect]
     Indication: MENOPAUSAL SYMPTOMS
  15. CENESTIN [Suspect]
     Indication: MENOPAUSAL SYMPTOMS
  16. ESTRADERM [Suspect]
     Indication: MENOPAUSAL SYMPTOMS
  17. VIVELLE [Suspect]
     Indication: MENOPAUSAL SYMPTOMS
  18. COMBIPATCH (NORETHISTERONE, ESTRADIOL) [Suspect]
     Indication: MENOPAUSAL SYMPTOMS
  19. ESTRACE [Suspect]
     Indication: MENOPAUSAL SYMPTOMS
  20. ESTRATEST [Suspect]
     Indication: MENOPAUSAL SYMPTOMS
  21. OGEN [Suspect]
     Indication: MENOPAUSAL SYMPTOMS
  22. ESTROPIPATE [Suspect]
     Indication: MENOPAUSAL SYMPTOMS
  23. ORTHO TRI-CYCLEN [Suspect]
     Indication: MENOPAUSAL SYMPTOMS
  24. ORTHO-PREFEST (ESTRADIOL) [Suspect]
     Indication: MENOPAUSAL SYMPTOMS
  25. ESTROGENS () [Suspect]
     Indication: MENOPAUSAL SYMPTOMS

REACTIONS (6)
  - ANXIETY [None]
  - BREAST CANCER FEMALE [None]
  - ECONOMIC PROBLEM [None]
  - OESTROGEN RECEPTOR ASSAY POSITIVE [None]
  - PROGESTERONE RECEPTOR ASSAY POSITIVE [None]
  - PSYCHIATRIC SYMPTOM [None]
